FAERS Safety Report 17909707 (Version 1)
Quarter: 2020Q2

REPORT INFORMATION
  Report Type: Spontaneous
  Country: US (occurrence: US)
  Receive Date: 20200618
  Receipt Date: 20200618
  Transmission Date: 20200714
  Serious: No
  Sender: FDA-Public Use
  Company Number: US-BRISTOL-MYERS SQUIBB COMPANY-BMS-2020-047954

PATIENT
  Sex: Male

DRUGS (1)
  1. NULOJIX [Suspect]
     Active Substance: BELATACEPT
     Indication: LUNG TRANSPLANT
     Dosage: UNAVAILABLE
     Route: 065
     Dates: start: 2019

REACTIONS (1)
  - Intentional product use issue [Unknown]
